FAERS Safety Report 8613947-7 (Version None)
Quarter: 2012Q3

REPORT INFORMATION
  Report Type: 
  Country: None (occurrence: None)
  Receive Date: 20120823
  Receipt Date: 20120820
  Transmission Date: 20120928
  Serious: No
  Sender: FDA-Public Use
  Company Number: US-PFIZER INC-2012169663

PATIENT
  Age: 34 Year
  Sex: Female
  Weight: 54.422 kg

DRUGS (1)
  1. NICOTROL [Suspect]
     Indication: SMOKING CESSATION THERAPY
     Dosage: UNK, AS NEEDED
     Route: 048
     Dates: start: 20120101, end: 20120201

REACTIONS (2)
  - NAUSEA [None]
  - VOMITING [None]
